FAERS Safety Report 7786066-X (Version None)
Quarter: 2011Q3

REPORT INFORMATION
  Report Type: 
  Country: None (occurrence: None)
  Receive Date: 20110929
  Receipt Date: 20110922
  Transmission Date: 20111222
  Serious: Yes (Other)
  Sender: FDA-Public Use
  Company Number: US-VIROPHARMA INCORPORATED-20110922CINRY2304

PATIENT
  Sex: Female

DRUGS (2)
  1. UNSPECIFIED SEIZURE MEDICATION [Concomitant]
     Indication: CONVULSION
     Dosage: UNKNOWN
  2. CINRYZE [Suspect]
     Indication: HEREDITARY ANGIOEDEMA
     Dates: start: 20110701

REACTIONS (4)
  - CONVULSION [None]
  - CONTUSION [None]
  - FALL [None]
  - LACERATION [None]
